FAERS Safety Report 7535791-4 (Version None)
Quarter: 2011Q2

REPORT INFORMATION
  Report Type: 
  Country: None (occurrence: None)
  Receive Date: 20110609
  Receipt Date: 20110531
  Transmission Date: 20111010
  Serious: Yes (Death, Hospitalization)
  Sender: FDA-Public Use
  Company Number: JP-JNJFOC-20110201631

PATIENT
  Sex: Female
  Weight: 69 kg

DRUGS (11)
  1. ZETIA [Concomitant]
     Route: 048
  2. DOXORUBICIN HCL [Suspect]
     Dosage: CYCLE 2
     Route: 042
     Dates: start: 20100127, end: 20100127
  3. DECADRON [Concomitant]
     Indication: PROPHYLAXIS
     Route: 042
     Dates: start: 20091104
  4. AMARYL [Concomitant]
     Route: 048
  5. ACTOS [Concomitant]
     Route: 048
  6. ASPIRIN [Concomitant]
     Route: 048
  7. PYDOXAL [Concomitant]
     Indication: PROPHYLAXIS
     Route: 048
     Dates: start: 20091104
  8. CRESTOR [Concomitant]
     Route: 048
  9. DOXORUBICIN HCL [Suspect]
     Indication: OVARIAN CANCER RECURRENT
     Dosage: CYCLE 1
     Route: 042
     Dates: start: 20091104, end: 20091104
  10. KYTRIL [Concomitant]
     Indication: PROPHYLAXIS
     Route: 042
     Dates: start: 20091104
  11. CANDESARTAN CILEXETIL [Concomitant]
     Route: 048

REACTIONS (3)
  - OVARIAN CANCER [None]
  - DISSEMINATED INTRAVASCULAR COAGULATION [None]
  - URINARY TRACT INFECTION [None]
